FAERS Safety Report 20737201 (Version 2)
Quarter: 2022Q2

REPORT INFORMATION
  Report Type: Report from Study
  Country: CO (occurrence: CO)
  Receive Date: 20220421
  Receipt Date: 20220505
  Transmission Date: 20220721
  Serious: No
  Sender: FDA-Public Use
  Company Number: CO-NOVARTISPH-NVSC2022CO089381

PATIENT
  Sex: Male
  Weight: 70 kg

DRUGS (1)
  1. COSENTYX [Suspect]
     Active Substance: SECUKINUMAB
     Indication: Psoriasis
     Dosage: 300 MG, QMO
     Route: 058

REACTIONS (4)
  - Skin haemorrhage [Unknown]
  - Pain in extremity [Unknown]
  - Skin lesion [Unknown]
  - Condition aggravated [Unknown]
